FAERS Safety Report 10016783 (Version 1)
Quarter: 2014Q1

REPORT INFORMATION
  Report Type: Spontaneous
  Country: AU (occurrence: AU)
  Receive Date: 20140318
  Receipt Date: 20140318
  Transmission Date: 20141002
  Serious: Yes (Hospitalization)
  Sender: FDA-Public Use
  Company Number: PHHY2014AU030973

PATIENT
  Age: 79 Year
  Sex: Male

DRUGS (1)
  1. ZOLEDRONATE [Suspect]
     Indication: OSTEITIS DEFORMANS
     Route: 042

REACTIONS (5)
  - Myocarditis [Recovered/Resolved]
  - Pyrexia [Recovered/Resolved]
  - Chills [Recovered/Resolved]
  - Chest pain [Recovered/Resolved]
  - Inflammatory marker increased [Recovered/Resolved]
